FAERS Safety Report 12753364 (Version 3)
Quarter: 2018Q3

REPORT INFORMATION
  Report Type: Spontaneous
  Country: BE (occurrence: BE)
  Receive Date: 20160916
  Receipt Date: 20180917
  Transmission Date: 20181010
  Serious: Yes (Other)
  Sender: FDA-Public Use
  Company Number: BE-LUPIN PHARMACEUTICALS INC.-2016-00699

PATIENT
  Age: 74 Year
  Sex: Female

DRUGS (2)
  1. CEFUROXIME. [Suspect]
     Active Substance: CEFUROXIME
     Indication: URINARY TRACT INFECTION
     Dosage: UNK
     Route: 048
  2. CEFUROXIME. [Suspect]
     Active Substance: CEFUROXIME
     Indication: RESPIRATORY TRACT INFECTION

REACTIONS (1)
  - Anaphylactic reaction [Unknown]
